FAERS Safety Report 23531444 (Version 1)
Quarter: 2024Q1

REPORT INFORMATION
  Report Type: Spontaneous
  Country: US (occurrence: US)
  Receive Date: 20240216
  Receipt Date: 20240216
  Transmission Date: 20240410
  Serious: Yes (Hospitalization, Other)
  Sender: FDA-Public Use
  Company Number: US-CLOVIS ONCOLOGY-CLO-2022-001228

PATIENT
  Age: 70 Year
  Sex: Female

DRUGS (1)
  1. RUCAPARIB [Suspect]
     Active Substance: RUCAPARIB
     Indication: Ovarian cancer
     Dosage: 600 MILLIGRAM, BID
     Route: 048
     Dates: start: 20211015, end: 20230410

REACTIONS (11)
  - Intestinal metastasis [Unknown]
  - Metastases to lymph nodes [Unknown]
  - Metastases to liver [Unknown]
  - Arthralgia [Unknown]
  - Carbohydrate antigen 125 increased [Not Recovered/Not Resolved]
  - Dry skin [Unknown]
  - Skin fissures [Unknown]
  - Sensitive skin [Unknown]
  - COVID-19 [Unknown]
  - Gastrointestinal motility disorder [Unknown]
  - Drug ineffective [Unknown]

NARRATIVE: CASE EVENT DATE: 20230201
